FAERS Safety Report 25494637 (Version 1)
Quarter: 2025Q2

REPORT INFORMATION
  Report Type: Spontaneous
  Country: US (occurrence: US)
  Receive Date: 20250630
  Receipt Date: 20250630
  Transmission Date: 20250716
  Serious: Yes (Other)
  Sender: GLAXOSMITHKLINE
  Company Number: US-GLAXOSMITHKLINE INC-US2025079238

PATIENT
  Sex: Female

DRUGS (1)
  1. BENLYSTA [Suspect]
     Active Substance: BELIMUMAB
     Indication: Systemic lupus erythematosus

REACTIONS (9)
  - Cerebrovascular accident [Unknown]
  - Seizure [Unknown]
  - Gastric operation [Unknown]
  - Central nervous system lesion [Unknown]
  - Ulcer [Unknown]
  - Arthralgia [Unknown]
  - Illness [Unknown]
  - Impaired work ability [Unknown]
  - Skin disorder [Unknown]
